FAERS Safety Report 8876655 (Version 1)
Quarter: 2012Q4

REPORT INFORMATION
  Report Type: 
  Country: FR (occurrence: FR)
  Receive Date: 20121029
  Receipt Date: 20121029
  Transmission Date: 20130627
  Serious: Yes (Hospitalization)
  Sender: FDA-Public Use
  Company Number: PHHY2012FR095170

PATIENT
  Age: 54 Year
  Sex: Male

DRUGS (6)
  1. AMOXICILLIN [Suspect]
     Dosage: 1 g, BID
  2. LAMOTRIGINE [Suspect]
     Dosage: 50 mg, QD
  3. PREDNISOLONE [Concomitant]
     Dosage: 20 mg, QD
  4. FENTANYL [Concomitant]
     Dosage: 25 ug/hr, UNK
  5. CLONAZEPAM [Concomitant]
     Dosage: 1 mg, TID
  6. PAROXETINE [Concomitant]
     Dosage: 10 mg, QD

REACTIONS (25)
  - Hypovolaemic shock [Recovered/Resolved]
  - Multi-organ failure [Recovered/Resolved]
  - Stupor [Recovered/Resolved]
  - Respiratory failure [Recovered/Resolved]
  - Stevens-Johnson syndrome [Recovered/Resolved]
  - Toxic epidermal necrolysis [Recovered/Resolved]
  - Septic shock [Recovered/Resolved]
  - Pneumonia [Recovered/Resolved]
  - Klebsiella infection [Recovered/Resolved]
  - Pyrexia [Recovered/Resolved]
  - Skin burning sensation [Recovered/Resolved]
  - Rash [Recovered/Resolved]
  - Eye pain [Recovered/Resolved]
  - Eye discharge [Recovered/Resolved]
  - Mouth ulceration [Recovered/Resolved]
  - Tachycardia [Recovered/Resolved]
  - Blister [Recovered/Resolved]
  - Pain [Recovered/Resolved]
  - Mucosal erosion [Recovered/Resolved]
  - Purpura [Recovered/Resolved]
  - Macule [Recovered/Resolved]
  - Erythema [Recovered/Resolved]
  - Epidermal necrosis [Recovered/Resolved]
  - Dry eye [Recovering/Resolving]
  - Skin depigmentation [Recovering/Resolving]
